FAERS Safety Report 6287853-X (Version None)
Quarter: 2009Q3

REPORT INFORMATION
  Report Type: 
  Country: None (occurrence: None)
  Receive Date: 20090729
  Receipt Date: 20090716
  Transmission Date: 20100115
  Serious: Yes (Other)
  Sender: FDA-Public Use
  Company Number: FR-RANBAXY-2009RR-25732

PATIENT
  Age: 26 Month

DRUGS (1)
  1. LOPERAMIDE HYDROCHLORIDE [Suspect]

REACTIONS (1)
  - LOSS OF CONSCIOUSNESS [None]
